FAERS Safety Report 18856631 (Version 2)
Quarter: 2021Q1

REPORT INFORMATION
  Report Type: Report from Study
  Country: CO (occurrence: CO)
  Receive Date: 20210207
  Receipt Date: 20210325
  Transmission Date: 20210420
  Serious: Yes (Hospitalization, Other)
  Sender: FDA-Public Use
  Company Number: CO-TAKEDA-CO201945180

PATIENT
  Age: 27 Year
  Sex: Female
  Weight: 70 kg

DRUGS (16)
  1. ICATIBANT [Suspect]
     Active Substance: ICATIBANT ACETATE
     Dosage: UNK UNK, PRN
     Route: 058
     Dates: start: 20200811, end: 20200811
  2. ICATIBANT [Suspect]
     Active Substance: ICATIBANT ACETATE
     Dosage: UNK UNK, PRN
     Route: 058
     Dates: start: 2018
  3. ICATIBANT [Suspect]
     Active Substance: ICATIBANT ACETATE
     Dosage: 30 MG/3ML, EVERY 6 HOURS, MAX 3 DOSES WITHIN 24 HOURS
     Route: 058
     Dates: start: 2018
  4. ICATIBANT [Suspect]
     Active Substance: ICATIBANT ACETATE
     Dosage: UNK UNK, PRN
     Route: 058
     Dates: start: 2018
  5. ICATIBANT [Suspect]
     Active Substance: ICATIBANT ACETATE
     Indication: HEREDITARY ANGIOEDEMA
     Dosage: UNK UNK, PRN
     Route: 058
     Dates: start: 2018
  6. ICATIBANT [Suspect]
     Active Substance: ICATIBANT ACETATE
     Dosage: UNK UNK, PRN
     Route: 058
     Dates: start: 20191225, end: 20191225
  7. ICATIBANT [Suspect]
     Active Substance: ICATIBANT ACETATE
     Dosage: UNK UNK, PRN
     Route: 058
     Dates: start: 20200923, end: 20200925
  8. ICATIBANT [Suspect]
     Active Substance: ICATIBANT ACETATE
     Indication: HEREDITARY ANGIOEDEMA
     Dosage: UNK UNK, PRN
     Route: 058
     Dates: start: 2018
  9. ICATIBANT [Suspect]
     Active Substance: ICATIBANT ACETATE
     Dosage: UNK UNK, PRN
     Route: 058
     Dates: start: 20191225, end: 20191225
  10. ICATIBANT [Suspect]
     Active Substance: ICATIBANT ACETATE
     Dosage: UNK UNK, PRN
     Route: 058
     Dates: start: 2018
  11. ICATIBANT [Suspect]
     Active Substance: ICATIBANT ACETATE
     Dosage: 30 MG/3ML, EVERY 6 HOURS, MAX 3 DOSES WITHIN 24 HOURS
     Route: 058
     Dates: start: 2018
  12. ICATIBANT [Suspect]
     Active Substance: ICATIBANT ACETATE
     Dosage: UNK UNK, PRN
     Route: 058
     Dates: start: 20200401, end: 20200401
  13. ICATIBANT [Suspect]
     Active Substance: ICATIBANT ACETATE
     Dosage: UNK UNK, PRN
     Route: 058
     Dates: start: 20200811, end: 20200811
  14. ICATIBANT [Suspect]
     Active Substance: ICATIBANT ACETATE
     Dosage: UNK UNK, PRN
     Route: 058
     Dates: start: 20200401, end: 20200401
  15. ICATIBANT [Suspect]
     Active Substance: ICATIBANT ACETATE
     Dosage: UNK UNK, PRN
     Route: 058
     Dates: start: 2018
  16. ICATIBANT [Suspect]
     Active Substance: ICATIBANT ACETATE
     Dosage: UNK UNK, PRN
     Route: 058
     Dates: start: 20200923, end: 20200925

REACTIONS (2)
  - Ectopic pregnancy [Recovering/Resolving]
  - Hereditary angioedema [Recovered/Resolved]

NARRATIVE: CASE EVENT DATE: 20200513
